FAERS Safety Report 9379058 (Version 2)
Quarter: 2013Q2

REPORT INFORMATION
  Report Type: Spontaneous
  Country: DE (occurrence: None)
  Receive Date: 20130507
  Receipt Date: 20130617
  Transmission Date: 20140414
  Serious: Yes (Death, Life-Threatening, Hospitalization)
  Sender: FDA-Public Use
  Company Number: 2012DE000937

PATIENT
  Age: 61 Year
  Sex: Male
  Weight: 72 kg

DRUGS (1)
  1. PONATINIB (AP24534) TABLET [Suspect]
     Indication: CHRONIC MYELOID LEUKAEMIA
     Route: 048
     Dates: start: 20120906, end: 20120924

REACTIONS (9)
  - Bone marrow failure [None]
  - Pneumonia [None]
  - Face oedema [None]
  - Abdominal pain [None]
  - Pleural effusion [None]
  - Chronic myeloid leukaemia [None]
  - Malignant neoplasm progression [None]
  - Splenomegaly [None]
  - Respiratory failure [None]
